FAERS Safety Report 6525500-X (Version None)
Quarter: 2010Q1

REPORT INFORMATION
  Report Type: 
  Country: None (occurrence: None)
  Receive Date: 20100104
  Receipt Date: 20091223
  Transmission Date: 20100710
  Serious: Yes (Other)
  Sender: FDA-Public Use
  Company Number: US-PFIZER INC-2009314292

PATIENT
  Sex: Male
  Weight: 88.435 kg

DRUGS (1)
  1. NICOTROL [Suspect]
     Indication: SMOKING CESSATION THERAPY
     Dates: start: 20060101, end: 20060101

REACTIONS (6)
  - BLOOD CHOLESTEROL INCREASED [None]
  - DRUG INEFFECTIVE [None]
  - HYPERTENSION [None]
  - STRESS [None]
  - TOBACCO USER [None]
  - WEIGHT INCREASED [None]
